FAERS Safety Report 10909973 (Version 1)
Quarter: 2015Q1

REPORT INFORMATION
  Report Type: Spontaneous
  Country: US (occurrence: US)
  Receive Date: 20150312
  Receipt Date: 20150312
  Transmission Date: 20150721
  Serious: No
  Sender: FDA-Public Use
  Company Number: US-SA-2014SA137513

PATIENT
  Age: 59 Year
  Sex: Female

DRUGS (1)
  1. NASACORT ALLERGY 24HR [Suspect]
     Active Substance: TRIAMCINOLONE ACETONIDE
     Dosage: PRODUCT START DATE: ONE MONTH AGO?2 SPRAYS PER NOSTRIL DAILY
     Route: 045

REACTIONS (4)
  - Abdominal pain upper [Unknown]
  - Extra dose administered [Unknown]
  - Dysgeusia [Unknown]
  - Headache [Unknown]

NARRATIVE: CASE EVENT DATE: 20140930
